FAERS Safety Report 21205738 (Version 2)
Quarter: 2022Q3

REPORT INFORMATION
  Report Type: Spontaneous
  Country: IN (occurrence: IN)
  Receive Date: 20220812
  Receipt Date: 20220818
  Transmission Date: 20221027
  Serious: Yes (Other)
  Sender: FDA-Public Use
  Company Number: IN-SUN PHARMACEUTICAL INDUSTRIES LTD-2022R1-348075

PATIENT
  Age: 42 Year
  Sex: Female

DRUGS (2)
  1. ERLOTINIB [Suspect]
     Active Substance: ERLOTINIB
     Indication: Renal cell carcinoma
     Dosage: 100 MILLIGRAM, QD
     Route: 065
     Dates: start: 201911
  2. BEVACIZUMAB [Suspect]
     Active Substance: BEVACIZUMAB
     Indication: Renal cell carcinoma
     Dosage: 500 MILLIGRAM AT 10 MG/KG
     Route: 065
     Dates: start: 201911

REACTIONS (2)
  - Dermatitis acneiform [Unknown]
  - Cholecystitis acute [Unknown]
